FAERS Safety Report 9508633 (Version 1)
Quarter: 2013Q1

REPORT INFORMATION
  Report Type: Spontaneous
  Country: US (occurrence: None)
  Receive Date: 20130305
  Receipt Date: 20130305
  Transmission Date: 20140127
  Serious: No
  Sender: FDA-Public Use
  Company Number: 163-21880-12082130

PATIENT
  Age: 66 Year
  Sex: Female

DRUGS (2)
  1. REVLIMID [Suspect]
     Dosage: 5MG, 21 IN 28D, PO
     Route: 048
     Dates: start: 20120719
  2. ACYCLOVIR (ACICLOVIR) (ACICLOVIR) [Concomitant]

REACTIONS (4)
  - Adverse reaction [None]
  - Abdominal discomfort [None]
  - Back pain [None]
  - Fatigue [None]
